FAERS Safety Report 5203444-3 (Version None)
Quarter: 2007Q1

REPORT INFORMATION
  Report Type: 
  Country: None (occurrence: None)
  Receive Date: 20070110
  Receipt Date: 20070104
  Transmission Date: 20070707
  Serious: Yes (Hospitalization)
  Sender: FDA-Public Use
  Company Number: GB-ROCHE-450598

PATIENT
  Age: 57 Year
  Sex: Male
  Weight: 77.6 kg

DRUGS (2)
  1. CAPECITABINE [Suspect]
     Indication: RECTAL CANCER
     Dosage: TAKEN CONTINUOUSLY THROUGHOUT THE COURSE OF RADIOTHERAPY AS PER PROTOCOL.
     Route: 048
     Dates: start: 20060503, end: 20060602
  2. IRINOTECAN HCL [Suspect]
     Indication: RECTAL CANCER
     Dosage: 60 MINUTE INTRAVENOUS INFUSION IN 250 MLS OF NORMAL SALINE DURING WEEKS 1, 2, 3 AND 4 OF RADIOTHERA+
     Route: 042
     Dates: start: 20060503, end: 20060525

REACTIONS (6)
  - ABDOMINAL PAIN [None]
  - DIARRHOEA [None]
  - NAUSEA [None]
  - PYREXIA [None]
  - SMALL INTESTINAL OBSTRUCTION [None]
  - VOMITING [None]
